FAERS Safety Report 10585368 (Version 1)
Quarter: 2014Q4

REPORT INFORMATION
  Report Type: Spontaneous
  Country: IT (occurrence: None)
  Receive Date: 20141113
  Receipt Date: 20141113
  Transmission Date: 20150529
  Serious: Yes (Death, Hospitalization)
  Sender: FDA-Public Use
  Company Number: COR_00145_2014

PATIENT
  Age: 76 Year
  Sex: Male

DRUGS (5)
  1. ASA [Concomitant]
     Active Substance: ASPIRIN
  2. CARBOPLATIN (CARBOPLATIN) [Suspect]
     Active Substance: CARBOPLATIN
     Indication: LUNG ADENOCARCINOMA
     Dosage: [DF, 6 CYCLES]
  3. LANSOPRAZOLE. [Concomitant]
     Active Substance: LANSOPRAZOLE
  4. GEMCITABINE [Suspect]
     Active Substance: GEMCITABINE\GEMCITABINE HYDROCHLORIDE
     Indication: LUNG ADENOCARCINOMA
     Dosage: DF, 6 CYCLES
  5. PYRIDOSTIGMINE [Concomitant]
     Active Substance: PYRIDOSTIGMINE

REACTIONS (9)
  - Seizure [None]
  - Somnolence [None]
  - Attention deficit/hyperactivity disorder [None]
  - Hemiparesis [None]
  - Muscular weakness [None]
  - Cognitive disorder [None]
  - Generalised tonic-clonic seizure [None]
  - VIIth nerve paralysis [None]
  - Dysarthria [None]
